FAERS Safety Report 24407748 (Version 2)
Quarter: 2025Q3

REPORT INFORMATION
  Report Type: Spontaneous
  Country: US (occurrence: US)
  Receive Date: 20241007
  Receipt Date: 20250810
  Transmission Date: 20251021
  Serious: No
  Sender: ALEXION PHARMACEUTICALS
  Company Number: US-AstraZeneca-CH-00713984A

PATIENT
  Age: 80 Year
  Sex: Female
  Weight: 58.05 kg

DRUGS (5)
  1. BREZTRI [Suspect]
     Active Substance: BUDESONIDE\FORMOTEROL\GLYCOPYRROLATE
     Indication: Asthma
     Dates: start: 20240821
  2. BREZTRI [Suspect]
     Active Substance: BUDESONIDE\FORMOTEROL\GLYCOPYRROLATE
     Indication: Dyspnoea
  3. ASPIRIN [Concomitant]
     Active Substance: ASPIRIN
     Route: 065
  4. HYDROCHLOROTHIAZIDE+METOPROLOL [Concomitant]
     Route: 065
  5. HYDROCHLOROTHIAZIDE\LISINOPRIL [Concomitant]
     Active Substance: HYDROCHLOROTHIAZIDE\LISINOPRIL
     Route: 065

REACTIONS (2)
  - Dysphonia [Unknown]
  - Hepatic enzyme increased [Unknown]

NARRATIVE: CASE EVENT DATE: 20240920
